FAERS Safety Report 5840510-3 (Version None)
Quarter: 2008Q3

REPORT INFORMATION
  Report Type: 
  Country: None (occurrence: None)
  Receive Date: 20080807
  Receipt Date: 20080807
  Transmission Date: 20090109
  Serious: No
  Sender: FDA-Public Use
  Company Number: None

PATIENT
  Age: 39 Year
  Sex: Female
  Weight: 60.782 kg

DRUGS (1)
  1. ADVAIR DISKUS 250/50 [Suspect]
     Indication: ASTHMA
     Dosage: 1 INHALATION 2 X'S DAILY PO, ABOUT 1 MONTH
     Route: 048
     Dates: start: 20080703, end: 20080806

REACTIONS (4)
  - DRY EYE [None]
  - DYSPHONIA [None]
  - HEADACHE [None]
  - OROPHARYNGEAL DISCOMFORT [None]
